FAERS Safety Report 5306055-4 (Version None)
Quarter: 2007Q2

REPORT INFORMATION
  Report Type: 
  Country: None (occurrence: None)
  Receive Date: 20070424
  Receipt Date: 20060407
  Transmission Date: 20071010
  Serious: Yes (Hospitalization)
  Sender: FDA-Public Use
  Company Number: US-BRISTOL-MYERS SQUIBB COMPANY-13340500

PATIENT
  Age: 75 Year
  Sex: Male
  Weight: 77 kg

DRUGS (4)
  1. HYDROXYUREA [Suspect]
     Indication: PLATELET COUNT INCREASED
     Route: 048
     Dates: start: 20060113
  2. AVODART [Concomitant]
  3. SPIRONOLACTONE [Concomitant]
  4. CENTRUM [Concomitant]

REACTIONS (2)
  - PYREXIA [None]
  - SKIN ULCER [None]
